FAERS Safety Report 5951915-4 (Version None)
Quarter: 2008Q4

REPORT INFORMATION
  Report Type: 
  Country: None (occurrence: None)
  Receive Date: 20081113
  Receipt Date: 20081031
  Transmission Date: 20090506
  Serious: Yes (Hospitalization, Other)
  Sender: FDA-Public Use
  Company Number: JP-ELI_LILLY_AND_COMPANY-JP200810006783

PATIENT
  Age: 70 Year
  Sex: Female

DRUGS (2)
  1. ZYPREXA [Suspect]
     Route: 048
  2. PAXIL [Concomitant]
     Route: 048

REACTIONS (3)
  - BONE DENSITY DECREASED [None]
  - FALL [None]
  - FRACTURE [None]
